FAERS Safety Report 10344472 (Version 1)
Quarter: 2014Q3

REPORT INFORMATION
  Report Type: Spontaneous
  Country: US (occurrence: None)
  Receive Date: 20140724
  Receipt Date: 20140724
  Transmission Date: 20150326
  Serious: Yes (Other)
  Sender: FDA-Public Use
  Company Number: US-016365

PATIENT
  Age: 49 Year
  Sex: Female

DRUGS (1)
  1. PREPOPIK [Suspect]
     Active Substance: ANHYDROUS CITRIC ACID\MAGNESIUM OXIDE\SODIUM PICOSULFATE
     Indication: BOWEL PREPARATION
     Dosage: 2 DF TOTAL, FIRST PACK: 5PM; SECOND PARK: 9PM ORAL
     Route: 048
     Dates: start: 20140703, end: 20140703

REACTIONS (5)
  - Facial bones fracture [None]
  - Blood potassium decreased [None]
  - Rib fracture [None]
  - Fall [None]
  - Dizziness postural [None]

NARRATIVE: CASE EVENT DATE: 20140703
